FAERS Safety Report 6055142-4 (Version None)
Quarter: 2009Q1

REPORT INFORMATION
  Report Type: 
  Country: None (occurrence: None)
  Receive Date: 20090128
  Receipt Date: 20090115
  Transmission Date: 20090719
  Serious: Yes (Other)
  Sender: FDA-Public Use
  Company Number: FR-ELI_LILLY_AND_COMPANY-FR200812000816

PATIENT
  Age: 51 Year
  Sex: Male
  Weight: 86 kg

DRUGS (13)
  1. CYMBALTA [Suspect]
     Indication: DEPRESSION
     Dosage: 30 MG, DAILY (1/D)
     Route: 048
     Dates: start: 20080919, end: 20081002
  2. LASILIX [Concomitant]
     Dosage: 1 D/F, EACH MORNING
     Route: 048
  3. KALEORID [Concomitant]
     Dosage: 1 D/F, DURING THE MEAL
     Route: 048
  4. PLAVIX [Concomitant]
     Dosage: 1 D/F, EACH EVENING
     Route: 048
  5. KARDEGIC [Concomitant]
     Dosage: 1 D/F, EACH EVENING
     Route: 065
  6. TAHOR [Concomitant]
     Dosage: 1 D/F, EACH EVENING
     Route: 048
  7. COVERSYL [Concomitant]
     Dosage: 1 D/F, EACH MORNING
     Route: 048
  8. METOPROLOL TARTRATE [Concomitant]
     Dosage: 0.5 D/F, 2/D (MORNING AND EVENING)
     Route: 048
  9. NEXIUM [Concomitant]
     Dosage: 1 D/F, EACH EVENING
     Route: 048
  10. NOVORAPID [Concomitant]
     Dosage: 12 U, 3/D
     Route: 058
  11. LANTUS [Concomitant]
     Dosage: 26 U, EACH EVENING
     Route: 058
  12. ACETAMINOPHEN [Concomitant]
     Indication: PAIN
     Dosage: 1 D/F, EVERY 6 TO 8 HOURS
     Route: 048
  13. KETOPROFEN [Concomitant]
     Dosage: UNK, 3/D (MORNING, NOON AND EVENING)
     Route: 065

REACTIONS (3)
  - GALLBLADDER POLYP [None]
  - GAMMA-GLUTAMYLTRANSFERASE INCREASED [None]
  - HEPATOCELLULAR INJURY [None]
